FAERS Safety Report 23545391 (Version 1)
Quarter: 2024Q1

REPORT INFORMATION
  Report Type: Report from Study
  Country: CA (occurrence: None)
  Receive Date: 20240220
  Receipt Date: 20240220
  Transmission Date: 20240409
  Serious: Yes (Other)
  Sender: FDA-Public Use
  Company Number: 2024A039700

PATIENT
  Sex: Female

DRUGS (4)
  1. FASENRA [Suspect]
     Active Substance: BENRALIZUMAB
     Indication: Asthma
     Dosage: 30.0MG UNKNOWN
     Route: 058
     Dates: start: 20240212
  2. BRICANYL [Suspect]
     Active Substance: TERBUTALINE SULFATE
     Route: 055
  3. ACLIDINIUM BROMIDE [Suspect]
     Active Substance: ACLIDINIUM BROMIDE
     Route: 055
  4. PULMICORT TURBUHALER [Suspect]
     Active Substance: BUDESONIDE
     Route: 055

REACTIONS (2)
  - Productive cough [Unknown]
  - Drug ineffective [Unknown]
